FAERS Safety Report 6039477-7 (Version None)
Quarter: 2009Q1

REPORT INFORMATION
  Report Type: 
  Country: None (occurrence: None)
  Receive Date: 20090114
  Receipt Date: 20090108
  Transmission Date: 20090719
  Serious: Yes (Hospitalization)
  Sender: FDA-Public Use
  Company Number: 08-109/206-01

PATIENT
  Age: 67 Year
  Sex: Female

DRUGS (3)
  1. RISPERIDONE (DR REDDY'S LAB) [Suspect]
     Indication: BIPOLAR DISORDER
     Dosage: 12 MG, DAILY, ORAL
     Route: 048
  2. RISPERIDONE (DR REDDY'S LAB) [Suspect]
     Indication: SCHIZOPHRENIA
     Dosage: 12 MG, DAILY, ORAL
     Route: 048
  3. ROPINIROLE (COREPHARMA) [Suspect]
     Indication: PARKINSON'S DISEASE

REACTIONS (3)
  - DRUG DISPENSING ERROR [None]
  - LOSS OF CONSCIOUSNESS [None]
  - WRONG DRUG ADMINISTERED [None]
